FAERS Safety Report 6242788-3 (Version None)
Quarter: 2009Q2

REPORT INFORMATION
  Report Type: 
  Country: None (occurrence: None)
  Receive Date: 20090624
  Receipt Date: 20090612
  Transmission Date: 20091009
  Serious: Yes (Death, Life-Threatening)
  Sender: FDA-Public Use
  Company Number: FR-PFIZER INC-2009156942

PATIENT
  Age: 70 Year

DRUGS (4)
  1. VFEND [Suspect]
     Indication: SEPSIS
     Dosage: 300 MG, 2X/DAY
     Route: 042
     Dates: start: 20081214, end: 20081224
  2. VFEND [Interacting]
     Dosage: 200 MG, 2X/DAY
     Route: 048
     Dates: start: 20081224, end: 20081228
  3. CASPOFUNGIN ACETATE [Interacting]
     Indication: SEPSIS
     Dosage: 70 MG, 1X/DAY
     Route: 042
     Dates: start: 20081216, end: 20081226
  4. TIENAM [Concomitant]
     Dosage: 1 G, 3X/DAY
     Dates: start: 20081216, end: 20081226

REACTIONS (2)
  - DRUG INTERACTION [None]
  - HEPATIC FAILURE [None]
